FAERS Safety Report 6876246-X (Version None)
Quarter: 2010Q3

REPORT INFORMATION
  Report Type: 
  Country: None (occurrence: None)
  Receive Date: 20100727
  Receipt Date: 20100721
  Transmission Date: 20110219
  Serious: Yes (Death, Hospitalization)
  Sender: FDA-Public Use
  Company Number: A0872181A

PATIENT
  Sex: Male
  Weight: 98 kg

DRUGS (5)
  1. SERETIDE [Suspect]
     Dosage: 1PUFF TWICE PER DAY
     Route: 055
     Dates: start: 20080101, end: 20100629
  2. VERAPAMIL [Concomitant]
     Dosage: 1TAB TWICE PER DAY
     Dates: start: 20060101, end: 20100629
  3. METHIMAZOLE [Concomitant]
     Dosage: 1TAB PER DAY
     Dates: start: 19990101, end: 20100629
  4. SPIRIVA [Concomitant]
     Dosage: 1PUFF TWICE PER DAY
     Route: 055
     Dates: start: 20080101, end: 20100629
  5. ATROVENT [Concomitant]

REACTIONS (1)
  - RESPIRATORY FAILURE [None]
